FAERS Safety Report 12464091 (Version 1)
Quarter: 2016Q2

REPORT INFORMATION
  Report Type: Spontaneous
  Country: US (occurrence: None)
  Receive Date: 20160613
  Receipt Date: 20160613
  Transmission Date: 20160815
  Serious: Yes (Disabling, Other)
  Sender: FDA-Public Use
  Company Number: None

PATIENT
  Age: 65 Year
  Sex: Female
  Weight: 71.67 kg

DRUGS (5)
  1. PRAVASTATIN 20MG, 20 MG DR. REDDYS DEA#BP 1884003 [Suspect]
     Active Substance: PRAVASTATIN\PRAVASTATIN SODIUM
     Indication: BLOOD CHOLESTEROL ABNORMAL
     Dosage: 30 TABLET(S) ONCE A DAY TAKEN BY MOUTH
     Route: 048
  2. ONE A DAY VITAMINS [Concomitant]
  3. SYNTHROID 112 [Concomitant]
  4. VITAMIN D [Concomitant]
     Active Substance: CHOLECALCIFEROL
  5. HYDROCHLORITTHYAZIDE 25 [Concomitant]

REACTIONS (8)
  - Decreased appetite [None]
  - Nausea [None]
  - Circumstance or information capable of leading to medication error [None]
  - Pain [None]
  - Asthenia [None]
  - Pyrexia [None]
  - Wrong drug administered [None]
  - Blood potassium decreased [None]
